FAERS Safety Report 7906585-2 (Version None)
Quarter: 2011Q4

REPORT INFORMATION
  Report Type: 
  Country: None (occurrence: None)
  Receive Date: 20111110
  Receipt Date: 20111102
  Transmission Date: 20120403
  Serious: Yes (Hospitalization)
  Sender: FDA-Public Use
  Company Number: CO-MPIJNJ-2011-04555

PATIENT

DRUGS (3)
  1. PREDNISOLONE [Concomitant]
     Indication: MULTIPLE MYELOMA
     Dosage: 60 MG/M2, UNK
  2. MELPHALAN HYDROCHLORIDE [Concomitant]
     Indication: MULTIPLE MYELOMA
     Dosage: 9 MG/M2, UNK
  3. VELCADE [Suspect]
     Indication: MULTIPLE MYELOMA
     Dosage: 1.3 MG/M2, 1/WEEK
     Route: 065
     Dates: start: 20110401

REACTIONS (1)
  - ORGANISING PNEUMONIA [None]
